FAERS Safety Report 7409590-8 (Version None)
Quarter: 2011Q2

REPORT INFORMATION
  Report Type: 
  Country: None (occurrence: None)
  Receive Date: 20110412
  Receipt Date: 20110404
  Transmission Date: 20111010
  Serious: Yes (Death)
  Sender: FDA-Public Use
  Company Number: US-GILEAD-2011-0037956

PATIENT
  Sex: Female

DRUGS (2)
  1. LETAIRIS [Suspect]
     Indication: PULMONARY HYPERTENSION
     Route: 048
     Dates: start: 20090511, end: 20110322
  2. LETAIRIS [Suspect]
     Indication: SCLERODERMA
     Route: 048
     Dates: start: 20090330, end: 20090511

REACTIONS (1)
  - COLITIS ISCHAEMIC [None]
